FAERS Safety Report 8963157 (Version 1)
Quarter: 2012Q4

REPORT INFORMATION
  Report Type: 
  Country: TR (occurrence: TR)
  Receive Date: 20121213
  Receipt Date: 20121213
  Transmission Date: 20130627
  Serious: Yes (Other)
  Sender: FDA-Public Use
  Company Number: TR-009507513-1210TUR004446

PATIENT
  Age: 44 Year
  Sex: Female

DRUGS (2)
  1. PEGINTERFERON ALFA-2B [Suspect]
     Dosage: 1.5 Microgram per kilogram, qw, cumulative dose 100 microgram per week
     Route: 058
  2. ACETAMINOPHEN [Concomitant]
     Dosage: 500 mg, Once,

REACTIONS (4)
  - Delirium [Recovered/Resolved with Sequelae]
  - Major depression [Recovered/Resolved with Sequelae]
  - Decreased appetite [Recovered/Resolved with Sequelae]
  - Weight decreased [Recovered/Resolved with Sequelae]
